FAERS Safety Report 9847136 (Version 1)
Quarter: 2013Q4

REPORT INFORMATION
  Report Type: Spontaneous
  Country: US (occurrence: None)
  Receive Date: 20131223
  Receipt Date: 20131223
  Transmission Date: 20140711
  Serious: Yes (Other)
  Sender: FDA-Public Use
  Company Number: SYM-2013-11249

PATIENT
  Age: 63 Year
  Sex: Male

DRUGS (1)
  1. XENAZINE (TETRABENAZINE) (25 MILLIGRAM, TABLET) (TETRABENAZINE) [Suspect]
     Indication: HUNTINGTON^S DISEASE
     Dosage: 25 MG, 2 IN 1 D, ORAL
     Route: 048
     Dates: start: 20121218

REACTIONS (3)
  - Tremor [None]
  - Dyskinesia [None]
  - Tardive dyskinesia [None]
